FAERS Safety Report 12884420 (Version 3)
Quarter: 2016Q4

REPORT INFORMATION
  Report Type: Spontaneous
  Country: JP (occurrence: JP)
  Receive Date: 20161026
  Receipt Date: 20161117
  Transmission Date: 20170207
  Serious: Yes (Death, Life-Threatening, Hospitalization, Other)
  Sender: FDA-Public Use
  Company Number: JP-009507513-1610JPN012461

PATIENT
  Age: 70 Year
  Sex: Female

DRUGS (11)
  1. BAYASPIRIN [Concomitant]
     Active Substance: ASPIRIN
     Dosage: DAILY DOSAGE UNKNOWN
     Route: 048
  2. MEVALOTIN [Concomitant]
     Active Substance: PRAVASTATIN SODIUM
     Dosage: DAILY DOSAGE UNKNOWN
     Route: 048
  3. THYRADIN-S [Concomitant]
     Active Substance: LEVOTHYROXINE
     Dosage: DAILY DOSAGE UNKNOWN
     Route: 048
  4. SENNOSIDES. [Concomitant]
     Active Substance: SENNOSIDES
     Dosage: DAILY DOSAGE UNKNOWN
     Route: 048
  5. REBETOL [Suspect]
     Active Substance: RIBAVIRIN
     Indication: CHRONIC HEPATITIS C
     Dosage: 600 MG, QD, DIVIDED DOSE FREQUENCY UNKNOWN
     Route: 048
     Dates: start: 20160913, end: 20161013
  6. DEPAS [Concomitant]
     Active Substance: ETIZOLAM
     Dosage: DAILY DOSAGE UNKNOWN
     Route: 048
  7. NEXIUM [Concomitant]
     Active Substance: ESOMEPRAZOLE MAGNESIUM
     Dosage: DAILY DOSAGE UNKNOWN
     Route: 048
  8. ECABET SODIUM [Concomitant]
     Active Substance: ECABET SODIUM
     Dosage: DAILY DOSAGE UNKNOWN
     Route: 048
  9. ZOPICLONE [Concomitant]
     Active Substance: ZOPICLONE
     Dosage: DAILY DOSAGE UNKNOWN
     Route: 048
  10. SOVALDI [Suspect]
     Active Substance: SOFOSBUVIR
     Indication: CHRONIC HEPATITIS C
     Dosage: 400 MG, QD, DIVIDED DOSE FREQUENCY UNKNOWN
     Route: 048
     Dates: start: 20160913, end: 20161013
  11. WARFARIN [Concomitant]
     Active Substance: WARFARIN
     Dosage: DAILY DOSAGE UNKNOWN
     Route: 048

REACTIONS (8)
  - Pulmonary embolism [Fatal]
  - Cardio-respiratory arrest [Fatal]
  - Gallbladder oedema [Unknown]
  - Hypoxic-ischaemic encephalopathy [Unknown]
  - Haemoglobin decreased [Unknown]
  - Dyspnoea [Unknown]
  - Thrombosis in device [Unknown]
  - Pancreatitis acute [Unknown]

NARRATIVE: CASE EVENT DATE: 2016
